FAERS Safety Report 25406515 (Version 1)
Quarter: 2025Q2

REPORT INFORMATION
  Report Type: Spontaneous
  Country: SI (occurrence: SI)
  Receive Date: 20250606
  Receipt Date: 20250606
  Transmission Date: 20250717
  Serious: Yes (Hospitalization, Other)
  Sender: AMNEAL
  Company Number: SI-AMNEAL PHARMACEUTICALS-2025-AMRX-02065

PATIENT

DRUGS (1)
  1. ALBUTEROL SULFATE [Suspect]
     Active Substance: ALBUTEROL SULFATE
     Indication: Product used for unknown indication
     Route: 051

REACTIONS (4)
  - Haemodynamic instability [Recovering/Resolving]
  - Tachyarrhythmia [Recovering/Resolving]
  - Toxicity to various agents [Recovering/Resolving]
  - Accidental exposure to product [Unknown]
